FAERS Safety Report 22295355 (Version 2)
Quarter: 2023Q2

REPORT INFORMATION
  Report Type: Spontaneous
  Country: US (occurrence: None)
  Receive Date: 20230508
  Receipt Date: 20230622
  Transmission Date: 20230721
  Serious: Yes (Other)
  Sender: FDA-Public Use
  Company Number: US-ROCHE-3306678

PATIENT
  Sex: Female

DRUGS (2)
  1. XOLAIR [Suspect]
     Active Substance: OMALIZUMAB
     Indication: Haemorrhagic disorder
     Route: 065
     Dates: start: 202206
  2. XOLAIR [Suspect]
     Active Substance: OMALIZUMAB
     Indication: Pain

REACTIONS (8)
  - Neoplasm malignant [Unknown]
  - Pyrexia [Unknown]
  - Myalgia [Unknown]
  - Rash [Unknown]
  - Infection [Unknown]
  - Cardiovascular disorder [Unknown]
  - Maternal exposure timing unspecified [Unknown]
  - Off label use [Unknown]

NARRATIVE: CASE EVENT DATE: 20220601
